FAERS Safety Report 7207846-5 (Version None)
Quarter: 2010Q4

REPORT INFORMATION
  Report Type: 
  Country: None (occurrence: None)
  Receive Date: 20101221
  Receipt Date: 20101206
  Transmission Date: 20110411
  Serious: Yes (Death)
  Sender: FDA-Public Use
  Company Number: 2010005390

PATIENT
  Age: 64 Year
  Sex: Male
  Weight: 52.3 kg

DRUGS (1)
  1. ERLOTINIB HYDROCHLORIDE [Suspect]
     Indication: LARGE CELL CARCINOMA OF THE RESPIRATORY TRACT STAGE UNSPECIFIED
     Dosage: (100 MG, QD), ORAL
     Route: 048
     Dates: start: 20090716, end: 20090919

REACTIONS (2)
  - ABDOMINAL PAIN [None]
  - CONSTIPATION [None]
